FAERS Safety Report 17191001 (Version 1)
Quarter: 2019Q4

REPORT INFORMATION
  Report Type: Spontaneous
  Country: IL (occurrence: IL)
  Receive Date: 20191223
  Receipt Date: 20191223
  Transmission Date: 20200122
  Serious: Yes (Life-Threatening, Hospitalization, Other)
  Sender: FDA-Public Use
  Company Number: IL-TEVA-2019-IL-1156512

PATIENT
  Age: 64 Year
  Sex: Male

DRUGS (3)
  1. CISPLATIN. [Suspect]
     Active Substance: CISPLATIN
     Indication: NASOPHARYNGEAL CANCER
     Route: 065
  2. 5-FLUOROURACIL [Suspect]
     Active Substance: FLUOROURACIL
     Indication: NASOPHARYNGEAL CANCER
     Route: 065
  3. DOCETAXEL. [Suspect]
     Active Substance: DOCETAXEL
     Indication: NASOPHARYNGEAL CANCER
     Route: 065

REACTIONS (13)
  - Osteoradionecrosis [Recovered/Resolved]
  - Oropharyngeal scar [Unknown]
  - Soft tissue infection [Recovered/Resolved]
  - Sepsis [Recovered/Resolved]
  - Pharyngeal ulceration [Recovered/Resolved]
  - Fistula [Recovered/Resolved]
  - Pharyngeal disorder [Not Recovered/Not Resolved]
  - Septic shock [Recovered/Resolved]
  - Laryngeal oedema [Not Recovered/Not Resolved]
  - Nasal ulcer [Recovered/Resolved]
  - Necrotising fasciitis [Recovered/Resolved]
  - Trismus [Unknown]
  - Pharyngeal oedema [Recovered/Resolved]
